FAERS Safety Report 6611855-4 (Version None)
Quarter: 2010Q1

REPORT INFORMATION
  Report Type: 
  Country: None (occurrence: None)
  Receive Date: 20100303
  Receipt Date: 20100223
  Transmission Date: 20100710
  Serious: Yes (Hospitalization)
  Sender: FDA-Public Use
  Company Number: DE-ROCHE-688089

PATIENT
  Sex: Female
  Weight: 150 kg

DRUGS (2)
  1. PEG-INTERFERON A-2A (RO 25-8310) [Suspect]
     Route: 058
     Dates: start: 20090828, end: 20100101
  2. RIBAVIRIN [Concomitant]
     Route: 048
     Dates: start: 20090828, end: 20100107

REACTIONS (1)
  - CARDIOMYOPATHY [None]
